FAERS Safety Report 5154604-1 (Version None)
Quarter: 2006Q4

REPORT INFORMATION
  Report Type: 
  Country: None (occurrence: None)
  Receive Date: 20061120
  Receipt Date: 20061114
  Transmission Date: 20070319
  Serious: Yes (Other)
  Sender: FDA-Public Use
  Company Number: US-ABBOTT-06P-163-0350354-00

PATIENT
  Age: 31 Year
  Sex: Female

DRUGS (3)
  1. NORVIR [Suspect]
     Indication: HIV INFECTION
     Route: 048
  2. REYATAZ [Suspect]
     Indication: HIV INFECTION
     Route: 048
  3. TRIZIVIR [Suspect]
     Indication: HIV INFECTION
     Route: 048

REACTIONS (2)
  - ABORTION INDUCED [None]
  - TWIN PREGNANCY [None]
